FAERS Safety Report 13104789 (Version 4)
Quarter: 2019Q4

REPORT INFORMATION
  Report Type: Spontaneous
  Country: US (occurrence: US)
  Receive Date: 20170111
  Receipt Date: 20191010
  Transmission Date: 20200122
  Serious: Yes (Other)
  Sender: FDA-Public Use
  Company Number: US-PFIZER INC-2017008088

PATIENT
  Age: 84 Year
  Sex: Female

DRUGS (1)
  1. XELJANZ XR [Suspect]
     Active Substance: TOFACITINIB CITRATE
     Indication: RHEUMATOID ARTHRITIS
     Dosage: 11 MG, 1X/DAY

REACTIONS (5)
  - Arthralgia [Unknown]
  - Road traffic accident [Unknown]
  - Upper limb fracture [Unknown]
  - Pain [Unknown]
  - Bone pain [Unknown]
